FAERS Safety Report 5485192-8 (Version None)
Quarter: 2007Q4

REPORT INFORMATION
  Report Type: 
  Country: None (occurrence: None)
  Receive Date: 20071010
  Receipt Date: 20071010
  Transmission Date: 20080405
  Serious: Yes (Life-Threatening)
  Sender: FDA-Public Use
  Company Number: None

PATIENT
  Sex: Male
  Weight: 85 kg

DRUGS (13)
  1. METHOTREXATE [Suspect]
     Indication: ACUTE LYMPHOCYTIC LEUKAEMIA
     Dosage: 420 MG -200 MG/M2- IV
     Route: 042
     Dates: start: 20070807, end: 20070921
  2. PEGASPARGASE ENZON [Suspect]
     Indication: ACUTE LYMPHOCYTIC LEUKAEMIA
     Dosage: 5375 UNITS -2500MG/M2- ONCE IM
     Route: 030
  3. BACTRIM DS [Concomitant]
  4. VINCRISTINE [Concomitant]
  5. DAUNORUBICIN [Concomitant]
  6. CYCLOPHOSPHAMIDE [Concomitant]
  7. CYTARABINE [Concomitant]
  8. MERCAPTOPURINE [Concomitant]
  9. PEGASPARGASE [Concomitant]
  10. METHOTREXATE [Concomitant]
  11. PREDNISONE [Concomitant]
  12. ONDANSETRON [Concomitant]
  13. MIRALAX [Concomitant]

REACTIONS (8)
  - CHOLESTASIS [None]
  - HEPATIC FAILURE [None]
  - HEPATIC FIBROSIS [None]
  - HEPATIC SIDEROSIS [None]
  - HEPATIC STEATOSIS [None]
  - HYPERAMMONAEMIA [None]
  - MULTI-ORGAN FAILURE [None]
  - RENAL IMPAIRMENT [None]
